FAERS Safety Report 19271234 (Version 1)
Quarter: 2021Q2

REPORT INFORMATION
  Report Type: Report from Study
  Country: CA (occurrence: CA)
  Receive Date: 20210518
  Receipt Date: 20210518
  Transmission Date: 20210717
  Serious: Yes (Death)
  Sender: FDA-Public Use
  Company Number: CA-EXELIXIS-CABO-21040472

PATIENT
  Age: 63 Year
  Sex: Female

DRUGS (24)
  1. FLOVENT [Concomitant]
     Active Substance: FLUTICASONE PROPIONATE
  2. SALBUTAMOL [Concomitant]
     Active Substance: ALBUTEROL
  3. DILAUDID [Concomitant]
     Active Substance: HYDROMORPHONE HYDROCHLORIDE
  4. BONE CARE [Concomitant]
     Active Substance: ATRACTYLODES LANCEA ROOT
  5. BLUE/GREEN ALGAE [Concomitant]
  6. CABOMETYX [Suspect]
     Active Substance: CABOZANTINIB S-MALATE
     Indication: RENAL CELL CARCINOMA
     Dosage: 60 MG, QD
     Route: 048
     Dates: start: 20201008
  7. PLAVIX [Concomitant]
     Active Substance: CLOPIDOGREL BISULFATE
  8. VITAMIN B12 [Concomitant]
     Active Substance: CYANOCOBALAMIN
  9. TYLENOL EXTRA STRENGTH [Concomitant]
     Active Substance: ACETAMINOPHEN
  10. LISINOPRIL. [Concomitant]
     Active Substance: LISINOPRIL
  11. VITAMIN B6 [Concomitant]
     Active Substance: PYRIDOXINE HYDROCHLORIDE
  12. ALLERGY [Concomitant]
     Active Substance: UNSPECIFIED INGREDIENT
  13. PROBIOTIC [Concomitant]
     Active Substance: PROBIOTICS NOS
  14. ZOFRAN [Concomitant]
     Active Substance: ONDANSETRON HYDROCHLORIDE
  15. METOPROLOL. [Concomitant]
     Active Substance: METOPROLOL
  16. TRIAZEPAM [Concomitant]
  17. PREMARIN [Concomitant]
     Active Substance: ESTROGENS, CONJUGATED
  18. IRON [Concomitant]
     Active Substance: IRON
  19. ROSUVASTATIN. [Concomitant]
     Active Substance: ROSUVASTATIN
  20. GLUCOSAMIN CHONDROITIN [Concomitant]
  21. IMMUNE DEFENSE [Concomitant]
  22. CHAMPIX [Concomitant]
     Active Substance: VARENICLINE TARTRATE
  23. SENIOR VITAMINS [Concomitant]
  24. VIT B17 [Concomitant]

REACTIONS (1)
  - Death [Fatal]

NARRATIVE: CASE EVENT DATE: 20201217
